FAERS Safety Report 5870735-2 (Version None)
Quarter: 2008Q3

REPORT INFORMATION
  Report Type: 
  Country: None (occurrence: None)
  Receive Date: 20080904
  Receipt Date: 20080827
  Transmission Date: 20090109
  Serious: Yes (Death)
  Sender: FDA-Public Use
  Company Number: CN-ROCHE-581797

PATIENT
  Age: 55 Year
  Sex: Male

DRUGS (1)
  1. PEGASYS [Suspect]
     Indication: HEPATITIS C
     Dosage: DOSING REPORTED AS 180UG PER WEEK
     Route: 058
     Dates: start: 20080510

REACTIONS (1)
  - DEATH [None]
